FAERS Safety Report 10032851 (Version 1)
Quarter: 2014Q1

REPORT INFORMATION
  Report Type: Spontaneous
  Country: US (occurrence: US)
  Receive Date: 20140324
  Receipt Date: 20140324
  Transmission Date: 20141002
  Serious: Yes (Other)
  Sender: FDA-Public Use
  Company Number: US-PFIZER INC-2014083553

PATIENT
  Age: 78 Year
  Sex: Female
  Weight: 67.12 kg

DRUGS (5)
  1. LYRICA [Suspect]
     Indication: HYPOAESTHESIA
     Dosage: 75 MG, 2X/DAY
     Dates: end: 201312
  2. LYRICA [Suspect]
     Indication: PARAESTHESIA
  3. LYRICA [Suspect]
     Indication: NERVE COMPRESSION
  4. LYRICA [Suspect]
     Indication: MUSCLE DISORDER
  5. DONEPEZIL HYDROCHLORIDE [Concomitant]
     Dosage: 10 MG, 1X/DAY

REACTIONS (3)
  - Cerebrovascular accident [Unknown]
  - Blood pressure increased [Unknown]
  - Pain in extremity [Unknown]
